FAERS Safety Report 19389958 (Version 1)
Quarter: 2021Q2

REPORT INFORMATION
  Report Type: Spontaneous
  Country: NL (occurrence: NL)
  Receive Date: 20210608
  Receipt Date: 20210608
  Transmission Date: 20210717
  Serious: Yes (Death)
  Sender: FDA-Public Use
  Company Number: NVSC2021NL128157

PATIENT
  Sex: Female

DRUGS (3)
  1. OCTREOTIDE HEXAL 0.1 MG [Suspect]
     Active Substance: OCTREOTIDE
  2. OCTREOTIDE HEXAL 0.1 MG [Suspect]
     Active Substance: OCTREOTIDE
     Indication: GASTROINTESTINAL STOMA COMPLICATION
     Dosage: UNK (3DD1 1 ML)
     Route: 065
     Dates: start: 20210524
  3. OCTREOTIDE HEXAL 0.1 MG [Suspect]
     Active Substance: OCTREOTIDE

REACTIONS (3)
  - Myoclonus [Fatal]
  - Cardiac arrest [Fatal]
  - Dizziness [Fatal]
